FAERS Safety Report 17202999 (Version 4)
Quarter: 2020Q3

REPORT INFORMATION
  Report Type: Spontaneous
  Country: US (occurrence: US)
  Receive Date: 20191226
  Receipt Date: 20200920
  Transmission Date: 20201102
  Serious: Yes (Hospitalization, Other)
  Sender: FDA-Public Use
  Company Number: US-PFIZER INC-2019551387

PATIENT
  Age: 63 Year
  Sex: Female
  Weight: 78 kg

DRUGS (14)
  1. HCTZ [Concomitant]
     Active Substance: HYDROCHLOROTHIAZIDE
     Dosage: UNK, 1X/DAY (HCTZ 25 QD (ONCE DAILY))
  2. BACLOFEN. [Concomitant]
     Active Substance: BACLOFEN
     Dosage: 10 MG, 4X/DAY
     Route: 048
  3. CELEBREX [Suspect]
     Active Substance: CELECOXIB
     Indication: ARTHRALGIA
     Dosage: 200 MG, DAILY
     Route: 048
     Dates: start: 20001219, end: 20010514
  4. PEPCID [Concomitant]
     Active Substance: FAMOTIDINE
     Dosage: 20 MG, 2X/DAY
     Route: 048
  5. AMLODIPINE [Concomitant]
     Active Substance: AMLODIPINE BESYLATE
     Dosage: 10 MG, 1X/DAY
  6. LEVONOX [Concomitant]
     Active Substance: ENOXAPARIN
     Dosage: 40 MG, DAILY
  7. CELEBREX [Suspect]
     Active Substance: CELECOXIB
     Indication: ARTHRITIS
     Dosage: 200 MG, DAILY (1 CAPSULE) EACH DAY
     Route: 048
  8. COZAAR [Concomitant]
     Active Substance: LOSARTAN POTASSIUM
     Dosage: UNK UNK, 1X/DAY (COZAAR 100 QD (ONCE DAILY))
  9. LORTAB [Concomitant]
     Active Substance: ACETAMINOPHEN\HYDROCODONE BITARTRATE
     Indication: PAIN
     Dosage: 1 DF, AS NEEDED [LORTAB 5/500 ONE EVERY FOUR HOURS PRN (AS NEEDED)]
     Route: 048
  10. DILANTIN [Concomitant]
     Active Substance: PHENYTOIN
     Dosage: 300 MG, 1X/DAY (Q.H.S (EVERY NIGHT AT BEDTIME) TIMES THREE DAYS ONLY)
     Route: 048
  11. CELEBREX [Suspect]
     Active Substance: CELECOXIB
     Dosage: 200 MG, DAILY
     Route: 048
     Dates: start: 200306
  12. NAPROSYN [Concomitant]
     Active Substance: NAPROXEN
     Dosage: 250 MG, 2X/DAY
     Route: 048
  13. ACCUPRIL [Concomitant]
     Active Substance: QUINAPRIL HYDROCHLORIDE
     Dosage: 40 MG, DAILY
     Route: 048
  14. INDAPAMIDE. [Concomitant]
     Active Substance: INDAPAMIDE
     Dosage: 1.25 MG, DAILY
     Route: 048

REACTIONS (11)
  - Facial paralysis [Recovering/Resolving]
  - Asthenia [Unknown]
  - Gait disturbance [Not Recovered/Not Resolved]
  - Cerebrovascular accident [Not Recovered/Not Resolved]
  - Basal ganglia haemorrhage [Unknown]
  - Haemorrhagic stroke [Unknown]
  - Hemiplegia [Recovering/Resolving]
  - Hemiparesis [Unknown]
  - Monoplegia [Unknown]
  - Blood pressure abnormal [Unknown]
  - Orthostatic hypotension [Recovered/Resolved]

NARRATIVE: CASE EVENT DATE: 2002
